FAERS Safety Report 23677307 (Version 2)
Quarter: 2024Q2

REPORT INFORMATION
  Report Type: Spontaneous
  Country: US (occurrence: US)
  Receive Date: 20240327
  Receipt Date: 20240503
  Transmission Date: 20240716
  Serious: Yes (Life-Threatening, Hospitalization)
  Sender: FDA-Public Use
  Company Number: US-AMERICAN REGENT INC-2024001046

PATIENT
  Age: 60 Year
  Sex: Female

DRUGS (2)
  1. TRANEXAMIC ACID [Suspect]
     Active Substance: TRANEXAMIC ACID
     Indication: Haemostasis
     Dosage: UNK
  2. ASPIRIN [Concomitant]
     Active Substance: ASPIRIN
     Indication: Coronary artery disease
     Dosage: 81 MILLIGRAM, QD
     Route: 065

REACTIONS (4)
  - Laryngeal obstruction [Recovered/Resolved]
  - Thrombosis [Recovered/Resolved]
  - Incorrect route of product administration [Unknown]
  - Product use in unapproved indication [Unknown]
